FAERS Safety Report 12866868 (Version 3)
Quarter: 2016Q4

REPORT INFORMATION
  Report Type: Report from Study
  Country: US (occurrence: US)
  Receive Date: 20161020
  Receipt Date: 20161101
  Transmission Date: 20170207
  Serious: Yes (Life-Threatening, Other)
  Sender: FDA-Public Use
  Company Number: US-009507513-1610USA004084

PATIENT

DRUGS (1)
  1. TEMODAR [Suspect]
     Active Substance: TEMOZOLOMIDE
     Indication: GLIOMA
     Dosage: 200 MG/M2, QD, FOR 5 CONSECUTIVE DAYS AND REPEATED EVERY 28 DAYS FOR UP TO 12 CYCLES
     Route: 048

REACTIONS (1)
  - Thrombocytopenia [Unknown]
